FAERS Safety Report 6656524-X (Version None)
Quarter: 2010Q1

REPORT INFORMATION
  Report Type: 
  Country: None (occurrence: None)
  Receive Date: 20100329
  Receipt Date: 20100319
  Transmission Date: 20100710
  Serious: Yes (Hospitalization)
  Sender: FDA-Public Use
  Company Number: US-ASTRAZENECA-2010SE12209

PATIENT
  Age: 49 Year
  Sex: Male

DRUGS (4)
  1. SEROQUEL XR [Suspect]
     Indication: BIPOLAR DISORDER
     Route: 048
  2. DEPAKOTE ER [Concomitant]
     Indication: MOOD SWINGS
  3. ELAVIL [Concomitant]
  4. ELAVIL [Concomitant]

REACTIONS (4)
  - AGITATION [None]
  - HALLUCINATION, VISUAL [None]
  - INTENTIONAL DRUG MISUSE [None]
  - PSYCHOTIC DISORDER [None]
